FAERS Safety Report 4288945-7 (Version None)
Quarter: 2004Q1

REPORT INFORMATION
  Report Type: 
  Country: None (occurrence: None)
  Receive Date: 20040209
  Receipt Date: 20040130
  Transmission Date: 20041129
  Serious: Yes (Other)
  Sender: FDA-Public Use
  Company Number: PHBS2004SE01555

PATIENT
  Age: 59 Year
  Sex: Female

DRUGS (7)
  1. NEORAL [Suspect]
     Indication: HEART TRANSPLANT
     Dosage: 200 MG/D
     Route: 048
     Dates: start: 19991101
  2. CELLCEPT [Concomitant]
     Dosage: 2 G/D
  3. PREDNISOLONE [Concomitant]
     Dosage: 7.5 MG/D
     Dates: start: 19990101
  4. TROMBYL [Concomitant]
     Dosage: 75 MG/D
     Dates: start: 20000101
  5. ACTIVELLE [Concomitant]
  6. ATACAND [Concomitant]
     Dates: start: 20000101
  7. CANEF [Concomitant]
     Dosage: 20 MG/D

REACTIONS (2)
  - PAPILLOEDEMA [None]
  - VISUAL FIELD DEFECT [None]
